FAERS Safety Report 13521549 (Version 1)
Quarter: 2017Q2

REPORT INFORMATION
  Report Type: Spontaneous
  Country: US (occurrence: US)
  Receive Date: 20170506
  Receipt Date: 20170506
  Transmission Date: 20170830
  Serious: Yes (Disabling, Other)
  Sender: FDA-Public Use
  Company Number: None

PATIENT
  Age: 27 Year
  Sex: Male
  Weight: 76.5 kg

DRUGS (1)
  1. YUTOPAR [Suspect]
     Active Substance: RITODRINE HYDROCHLORIDE
     Indication: PREMATURE DELIVERY

REACTIONS (5)
  - Antisocial behaviour [None]
  - Bipolar disorder [None]
  - Attention deficit/hyperactivity disorder [None]
  - Suicidal behaviour [None]
  - Unevaluable event [None]

NARRATIVE: CASE EVENT DATE: 19900118
